FAERS Safety Report 9853999 (Version 2)
Quarter: 2014Q1

REPORT INFORMATION
  Report Type: Spontaneous
  Country: DE (occurrence: DE)
  Receive Date: 20140129
  Receipt Date: 20140208
  Transmission Date: 20141002
  Serious: Yes (Hospitalization, Other)
  Sender: FDA-Public Use
  Company Number: DE-BAXTER-2014BAX003427

PATIENT
  Age: 75 Year
  Sex: Male
  Weight: 83 kg

DRUGS (1)
  1. KIOVIG (10 G/100 ML) [Suspect]
     Indication: SECONDARY IMMUNODEFICIENCY
     Route: 042
     Dates: start: 20140122

REACTIONS (7)
  - Back pain [Recovered/Resolved]
  - Dyspnoea [Unknown]
  - Chest pain [Unknown]
  - Feeling hot [Recovered/Resolved]
  - Restlessness [Unknown]
  - Flank pain [Unknown]
  - Pain [Unknown]
